FAERS Safety Report 22098663 (Version 2)
Quarter: 2023Q1

REPORT INFORMATION
  Report Type: Report from Study
  Country: BR (occurrence: BR)
  Receive Date: 20230315
  Receipt Date: 20230330
  Transmission Date: 20230417
  Serious: Yes (Hospitalization, Other)
  Sender: FDA-Public Use
  Company Number: BR-JNJFOC-20230323207

PATIENT
  Age: 73 Year
  Sex: Male
  Weight: 60 kg

DRUGS (8)
  1. INFLIXIMAB [Suspect]
     Active Substance: INFLIXIMAB
     Indication: Crohn^s disease
     Dosage: 100 MG EVERY 8 WEEKS?LAST INFUSION ON 18-MAR-2023
     Route: 041
     Dates: start: 20200722
  2. FUROSEMIDE [Concomitant]
     Active Substance: FUROSEMIDE
     Route: 065
  3. RIVAROXABAN [Concomitant]
     Active Substance: RIVAROXABAN
     Route: 065
  4. LOSARTAN [Concomitant]
     Active Substance: LOSARTAN
     Route: 065
  5. LOSARTAN [Concomitant]
     Active Substance: LOSARTAN
     Route: 065
  6. BUDESONIDE\FORMOTEROL FUMARATE [Concomitant]
     Active Substance: BUDESONIDE\FORMOTEROL FUMARATE
  7. SPIRONOLACTONE [Concomitant]
     Active Substance: SPIRONOLACTONE
     Route: 065
  8. AEROFRIN [Concomitant]

REACTIONS (12)
  - Hepatic cirrhosis [Unknown]
  - Pneumonia [Recovering/Resolving]
  - Tuberculosis [Unknown]
  - Hepatitis [Unknown]
  - Cardiac arrest [Unknown]
  - Intracardiac thrombus [Recovering/Resolving]
  - Pancreatitis [Unknown]
  - Arrhythmia [Recovering/Resolving]
  - Crohn^s disease [Not Recovered/Not Resolved]
  - Hypoacusis [Unknown]
  - Confusional state [Unknown]
  - Stress [Unknown]

NARRATIVE: CASE EVENT DATE: 20230201
